FAERS Safety Report 4999697-7 (Version None)
Quarter: 2006Q2

REPORT INFORMATION
  Report Type: 
  Country: None (occurrence: None)
  Receive Date: 20060511
  Receipt Date: 20060504
  Transmission Date: 20061013
  Serious: Yes (Other)
  Sender: FDA-Public Use
  Company Number: US-JNJFOC-20060501246

PATIENT
  Sex: Female
  Weight: 61.24 kg

DRUGS (19)
  1. REMICADE [Suspect]
     Indication: RHEUMATOID ARTHRITIS
     Route: 042
  2. PAXIL [Concomitant]
  3. ZANAFLEX [Concomitant]
  4. PLAQUENIL [Concomitant]
  5. PREVACID [Concomitant]
  6. ESTRATEST [Concomitant]
  7. ESTRATEST [Concomitant]
  8. XANAX [Concomitant]
  9. PREDNISONE TAB [Concomitant]
  10. TRAZODONE HCL [Concomitant]
  11. IMURAN [Concomitant]
  12. MOBIC [Concomitant]
  13. BENICAR [Concomitant]
  14. REGLAN [Concomitant]
  15. SINEMAT [Concomitant]
  16. SINEMAT [Concomitant]
     Dosage: 50/20
  17. BENADRYL [Concomitant]
  18. VITAMIN E [Concomitant]
  19. CALCIUM GLUCONATE [Concomitant]

REACTIONS (1)
  - MALIGNANT MELANOMA [None]
